FAERS Safety Report 19719734 (Version 2)
Quarter: 2021Q3

REPORT INFORMATION
  Report Type: Spontaneous
  Country: JP (occurrence: JP)
  Receive Date: 20210818
  Receipt Date: 20210927
  Transmission Date: 20211014
  Serious: Yes (Death)
  Sender: FDA-Public Use
  Company Number: JP-MYLANLABS-2021M1051866

PATIENT
  Age: 71 Year
  Sex: Male
  Weight: 55.7 kg

DRUGS (7)
  1. ETOPOSIDE. [Suspect]
     Active Substance: ETOPOSIDE
     Indication: SMALL CELL LUNG CANCER EXTENSIVE STAGE
     Dosage: 160 MILLIGRAM, QD
     Route: 042
     Dates: start: 20210729, end: 20210731
  2. TAKECAB [Concomitant]
     Active Substance: VONOPRAZAN FUMARATE
     Indication: GASTRITIS PROPHYLAXIS
     Dosage: 10 MILLIGRAM, QD
     Route: 048
     Dates: start: 20210713, end: 20210808
  3. CARBOPLATIN INJ. 50MG ^NK^ [Suspect]
     Active Substance: CARBOPLATIN
     Indication: SMALL CELL LUNG CANCER EXTENSIVE STAGE
     Dosage: 440 MILLIGRAM, QD
     Route: 041
     Dates: start: 20210729, end: 20210729
  4. MAGNESIUM OXIDE. [Concomitant]
     Active Substance: MAGNESIUM OXIDE
     Indication: CONSTIPATION
     Dosage: 330 MILLIGRAM, TID
     Route: 048
     Dates: start: 20210728, end: 20210808
  5. DECADRON [Concomitant]
     Active Substance: DEXAMETHASONE
     Indication: PROPHYLAXIS OF NAUSEA AND VOMITING
     Dosage: 4 MILLIGRAM, QD
     Route: 048
     Dates: start: 20210730, end: 20210801
  6. APREPITANT. [Concomitant]
     Active Substance: APREPITANT
     Indication: PROPHYLAXIS OF NAUSEA AND VOMITING
     Dosage: 125MG OR 80MG, ONCE DAILY
     Route: 048
     Dates: start: 20210729, end: 20210731
  7. PREDONINE [Concomitant]
     Active Substance: PREDNISOLONE
     Indication: METASTASES TO BONE
     Dosage: 5 MILLIGRAM, QD
     Route: 048
     Dates: start: 20210713, end: 20210808

REACTIONS (1)
  - Febrile neutropenia [Fatal]

NARRATIVE: CASE EVENT DATE: 20210808
